FAERS Safety Report 5083935-9 (Version None)
Quarter: 2006Q3

REPORT INFORMATION
  Report Type: 
  Country: None (occurrence: None)
  Receive Date: 20060727
  Receipt Date: 20060406
  Transmission Date: 20061208
  Serious: Yes (Other)
  Sender: FDA-Public Use
  Company Number: 2006049979

PATIENT
  Sex: Female

DRUGS (3)
  1. LYRICA [Suspect]
     Indication: POST HERPETIC NEURALGIA
     Dates: start: 20060101
  2. KEPPRA [Concomitant]
  3. DRUG, UNSPECIFIED (DRUG, UNSPECIFIED) [Concomitant]

REACTIONS (1)
  - DRUG SCREEN POSITIVE [None]
